FAERS Safety Report 18165835 (Version 1)
Quarter: 2020Q3

REPORT INFORMATION
  Report Type: Spontaneous
  Country: CA (occurrence: CA)
  Receive Date: 20200819
  Receipt Date: 20200819
  Transmission Date: 20201103
  Serious: Yes (Death)
  Sender: FDA-Public Use
  Company Number: CA-TEVA-2020-CA-1815658

PATIENT
  Age: 66 Year
  Sex: Male
  Weight: 76 kg

DRUGS (20)
  1. BLEOMYCIN SULFATE [Suspect]
     Active Substance: BLEOMYCIN SULFATE
     Indication: CHRONIC LYMPHOCYTIC LEUKAEMIA
     Route: 042
  2. HYDROCHLOROTHIAZIDE. [Suspect]
     Active Substance: HYDROCHLOROTHIAZIDE
     Indication: HYPERTENSION
     Route: 042
  3. ANUSOL?HC [HYDROCORTISONE ACETATE] [Concomitant]
     Indication: HAEMORRHOIDS
     Dosage: ANUSOL?HC [HYDROCORTISONE ACETATE]
  4. BENDAMUSTINE HYDROCHLORIDE. [Suspect]
     Active Substance: BENDAMUSTINE HYDROCHLORIDE
     Indication: CHRONIC LYMPHOCYTIC LEUKAEMIA
     Route: 042
  5. FLUTICASONE. [Concomitant]
     Active Substance: FLUTICASONE
     Indication: UPPER-AIRWAY COUGH SYNDROME
     Route: 065
  6. PROCHLORPERAZINE. [Concomitant]
     Active Substance: PROCHLORPERAZINE
     Indication: NAUSEA
  7. VINCRISTINE SULFATE. [Suspect]
     Active Substance: VINCRISTINE SULFATE
     Indication: CHRONIC LYMPHOCYTIC LEUKAEMIA
     Route: 042
  8. CYCLOPHOSPHAMIDE. [Suspect]
     Active Substance: CYCLOPHOSPHAMIDE
     Indication: CHRONIC LYMPHOCYTIC LEUKAEMIA
     Route: 042
  9. FLUTICASONE. [Concomitant]
     Active Substance: FLUTICASONE
     Indication: COUGH
  10. SERTRALINE [Concomitant]
     Active Substance: SERTRALINE HYDROCHLORIDE
     Route: 065
  11. TYLENOL [Concomitant]
     Active Substance: ACETAMINOPHEN
     Route: 065
  12. FLUDARABINE PHOSPHATE. [Suspect]
     Active Substance: FLUDARABINE PHOSPHATE
     Indication: CHRONIC LYMPHOCYTIC LEUKAEMIA
     Route: 042
  13. NEULASTA [Suspect]
     Active Substance: PEGFILGRASTIM
     Indication: CHRONIC LYMPHOCYTIC LEUKAEMIA
     Dosage: SOLUTION SUBCUTANEOUS
     Route: 042
  14. CHOLECALCIFEROL [Concomitant]
     Active Substance: CHOLECALCIFEROL
  15. LUTEIN [XANTOFYL] [Concomitant]
  16. FLUTICASONE. [Concomitant]
     Active Substance: FLUTICASONE
     Indication: SEASONAL ALLERGY
  17. OXAZEPAM. [Concomitant]
     Active Substance: OXAZEPAM
     Indication: ANXIETY
     Route: 065
  18. ENALAPRIL [Suspect]
     Active Substance: ENALAPRIL
     Indication: HYPERTENSION
     Route: 042
  19. RITUXIMAB. [Suspect]
     Active Substance: RITUXIMAB
     Indication: CHRONIC LYMPHOCYTIC LEUKAEMIA
     Route: 042
  20. TREANDA [Suspect]
     Active Substance: BENDAMUSTINE HYDROCHLORIDE
     Indication: CHRONIC LYMPHOCYTIC LEUKAEMIA
     Route: 042

REACTIONS (4)
  - Febrile neutropenia [Fatal]
  - Death [Fatal]
  - Blood pressure decreased [Fatal]
  - Neoplasm progression [Fatal]
